FAERS Safety Report 8011683-1 (Version None)
Quarter: 2011Q4

REPORT INFORMATION
  Report Type: 
  Country: None (occurrence: None)
  Receive Date: 20111228
  Receipt Date: 20111221
  Transmission Date: 20120403
  Serious: Yes (Hospitalization)
  Sender: FDA-Public Use
  Company Number: US-US-EMD SERONO, INC.-7097207

PATIENT
  Sex: Female
  Weight: 91 kg

DRUGS (2)
  1. REBIF [Suspect]
     Indication: MULTIPLE SCLEROSIS
     Route: 058
     Dates: start: 20111027
  2. REBIF [Suspect]
     Route: 058
     Dates: end: 20111101

REACTIONS (6)
  - HEAD INJURY [None]
  - FALL [None]
  - PULMONARY EMBOLISM [None]
  - MUSCLE RUPTURE [None]
  - HAEMORRHAGE [None]
  - GAIT DISTURBANCE [None]
